FAERS Safety Report 14593558 (Version 1)
Quarter: 2018Q1

REPORT INFORMATION
  Report Type: Spontaneous
  Country: JP (occurrence: JP)
  Receive Date: 20180302
  Receipt Date: 20180302
  Transmission Date: 20180509
  Serious: Yes (Life-Threatening, Hospitalization)
  Sender: FDA-Public Use
  Company Number: JP-PFIZER INC-2018036733

PATIENT
  Age: 56 Year
  Sex: Male
  Weight: 68 kg

DRUGS (7)
  1. BAYASPIRIN [Concomitant]
     Active Substance: ASPIRIN
     Dosage: 100 MG, 1X/DAY
  2. LIXIANA [Concomitant]
     Active Substance: EDOXABAN TOSYLATE
     Dosage: 60 MG, 1X/DAY
     Dates: start: 20171122
  3. ARTZ [Concomitant]
     Active Substance: HYALURONATE SODIUM
     Dosage: UNK
     Dates: start: 20180122
  4. CELECOX [Suspect]
     Active Substance: CELECOXIB
     Indication: PERIARTHRITIS
     Dosage: 100 MG, TWICE DAILY
     Route: 048
     Dates: start: 20180122
  5. NEXIUM [Concomitant]
     Active Substance: ESOMEPRAZOLE MAGNESIUM
     Dosage: 20 MG, 1X/DAY
  6. EQUA [Concomitant]
     Active Substance: VILDAGLIPTIN
     Dosage: 50 MG, 2X/DAY
  7. METGLUCO [Concomitant]
     Active Substance: METFORMIN HYDROCHLORIDE
     Dosage: 250 MG, 2X/DAY

REACTIONS (6)
  - Flushing [Recovered/Resolved]
  - Rash [Recovered/Resolved]
  - Anaphylactic reaction [Recovered/Resolved]
  - Lip swelling [Recovered/Resolved]
  - Generalised oedema [Recovered/Resolved]
  - Dyspnoea [Recovered/Resolved]

NARRATIVE: CASE EVENT DATE: 20180123
